FAERS Safety Report 8603162-5 (Version None)
Quarter: 2012Q3

REPORT INFORMATION
  Report Type: 
  Country: None (occurrence: None)
  Receive Date: 20120817
  Receipt Date: 20120813
  Transmission Date: 20120928
  Serious: Yes (Hospitalization)
  Sender: FDA-Public Use
  Company Number: US-TEVA-353918USA

PATIENT
  Age: 27 Year
  Sex: Male

DRUGS (3)
  1. BUPROPION HCL [Concomitant]
     Route: 065
  2. BENZTROPINE MESYLATE [Suspect]
     Route: 065
  3. OLANZAPINE [Suspect]
     Route: 065

REACTIONS (1)
  - COLITIS ISCHAEMIC [None]
